FAERS Safety Report 8641407 (Version 2)
Quarter: 2015Q1

REPORT INFORMATION
  Report Type: Report from Study
  Country: US (occurrence: US)
  Receive Date: 20120628
  Receipt Date: 20150319
  Transmission Date: 20150721
  Serious: Yes (Death)
  Sender: FDA-Public Use
  Company Number: US-ROCHE-1082390

PATIENT
  Sex: Male

DRUGS (26)
  1. AVASTIN [Suspect]
     Active Substance: BEVACIZUMAB
     Indication: GASTRIC CANCER
     Dosage: OVER 90 MINUTES AT 66.66 ML/HOUR
     Route: 042
     Dates: start: 20110331
  2. AVASTIN [Suspect]
     Active Substance: BEVACIZUMAB
     Dosage: OVER 30 MINUTES AT 200 ML/HOUR
     Route: 042
     Dates: start: 20110728
  3. TORISEL [Concomitant]
     Active Substance: TEMSIROLIMUS
     Dosage: NACL 0.9% INJECTION (250ML)?INFUSION OVER 60MINS AT 250 MLS/HR.
     Route: 042
     Dates: start: 20110331
  4. TORISEL [Concomitant]
     Active Substance: TEMSIROLIMUS
     Dosage: NACL 0.9% INJECTION (250ML)?INFUSION OVER 60MINS AT 250 MLS/HR.
     Route: 042
     Dates: start: 20110421
  5. TORISEL [Concomitant]
     Active Substance: TEMSIROLIMUS
     Dosage: NACL 0.9% INJECTION (250ML)?INFUSION OVER 60MINS AT 250 MLS/HR.
     Route: 042
     Dates: start: 20110512
  6. DIPHENHYDRAMINE [Concomitant]
     Active Substance: DIPHENHYDRAMINE
     Dosage: 25MG NACL (50ML)?INFUSION OVER 15MINS AT 200 MLS/HR.
     Route: 042
     Dates: start: 20110707
  7. DIPHENHYDRAMINE [Concomitant]
     Active Substance: DIPHENHYDRAMINE
     Dosage: 25MG NACL (50ML)?INFUSION OVER 15MINS AT 200 MLS/HR.
     Route: 042
     Dates: start: 20110908
  8. DIPHENHYDRAMINE [Concomitant]
     Active Substance: DIPHENHYDRAMINE
     Dosage: 25MG NACL (50ML)?INFUSION OVER 15MINS AT 200 MLS/HR.
     Route: 042
     Dates: start: 20110512
  9. TORISEL [Concomitant]
     Active Substance: TEMSIROLIMUS
     Dosage: NACL 0.9% INJECTION (250ML)?INFUSION OVER 60MINS AT 250 MLS/HR.
     Route: 042
     Dates: start: 20110707
  10. TORISEL [Concomitant]
     Active Substance: TEMSIROLIMUS
     Dosage: NACL 0.9% INJECTION (250ML)?INFUSION OVER 60MINS AT 250 MLS/HR.
     Route: 042
     Dates: start: 20110728
  11. DIPHENHYDRAMINE [Concomitant]
     Active Substance: DIPHENHYDRAMINE
     Dosage: 25MG NACL (50ML)?INFUSION OVER 15MINS AT 200 MLS/HR.
     Route: 042
     Dates: start: 20110728
  12. DIPHENHYDRAMINE [Concomitant]
     Active Substance: DIPHENHYDRAMINE
     Dosage: 25MG NACL (50ML)?INFUSION OVER 15MINS AT 200 MLS/HR.
     Route: 042
     Dates: start: 20110421
  13. ZANTAC [Concomitant]
     Active Substance: RANITIDINE HYDROCHLORIDE
     Dosage: NACL 0.9% INJECTION (50ML)?INFUSION OVER 15MINS AT 200 MLS/HR.
     Route: 042
     Dates: start: 20110905
  14. SODIUM CHLORIDE. [Concomitant]
     Active Substance: SODIUM CHLORIDE
     Dosage: OVER 2 HOURS AT RATE OF 250 ML/HOUR
     Route: 042
     Dates: start: 20110331
  15. AVASTIN [Suspect]
     Active Substance: BEVACIZUMAB
     Indication: NEOPLASM MALIGNANT
     Dosage: OVER 60 MINUTES AT 100 ML/HOUR
     Route: 042
     Dates: start: 20110421
  16. AVASTIN [Suspect]
     Active Substance: BEVACIZUMAB
     Dosage: OVER 30 MINUTES AT 200 ML/HOUR. ALSO GIVEN ON 02/JUN/2011
     Route: 042
     Dates: start: 20110512
  17. AVASTIN [Suspect]
     Active Substance: BEVACIZUMAB
     Dosage: NACL 0.9% INJECTION (100ML)?INFUSION OVER 30MINS AT 200 MLS/HR.
     Route: 042
     Dates: start: 20110908
  18. AVASTIN [Suspect]
     Active Substance: BEVACIZUMAB
     Dosage: NACL 0.9% INJECTION (100ML)?INFUSION OVER 30MINS AT 200 MLS/HR.
     Route: 042
     Dates: start: 20110602
  19. DIPHENHYDRAMINE [Concomitant]
     Active Substance: DIPHENHYDRAMINE
     Dosage: 25MG NACL (50ML)?INFUSION OVER 15MINS AT 200 MLS/HR.
     Route: 042
     Dates: start: 20110331
  20. TORISEL [Concomitant]
     Active Substance: TEMSIROLIMUS
     Dosage: OVER 60 MIN AT 250 ML/HOUR
     Route: 042
  21. DIPHENHYDRAMINE [Concomitant]
     Active Substance: DIPHENHYDRAMINE
     Dosage: OVER 30 MIN AT 200 ML/HOUR
     Route: 042
  22. AVASTIN [Suspect]
     Active Substance: BEVACIZUMAB
     Dosage: OVER 30 MINUTES AT 200 ML/HOUR
     Route: 042
     Dates: start: 20110707
  23. AVASTIN [Suspect]
     Active Substance: BEVACIZUMAB
     Dosage: OVER 90 MINUTES AT 66.66 ML/HOUR
     Route: 042
     Dates: start: 20110908
  24. DIPHENHYDRAMINE [Concomitant]
     Active Substance: DIPHENHYDRAMINE
     Dosage: 25MG NACL ?INFUSION OVER 15MINS AT 200 MLS/HR.
     Route: 042
     Dates: start: 20110602
  25. TORISEL [Concomitant]
     Active Substance: TEMSIROLIMUS
     Dosage: NACL 0.9% INJECTION (250ML)?INFUSION OVER 60MINS AT 250 MLS/HR.
     Route: 042
     Dates: start: 20110602
  26. PACLITAXEL. [Concomitant]
     Active Substance: PACLITAXEL
     Dosage: NACL 0.9% INJECTION (250ML)?INFUSION OVER 60MINS AT 250 MLS/HR
     Route: 042
     Dates: start: 20110908

REACTIONS (1)
  - Death [Fatal]
